FAERS Safety Report 6147020-7 (Version None)
Quarter: 2009Q2

REPORT INFORMATION
  Report Type: 
  Country: None (occurrence: None)
  Receive Date: 20090407
  Receipt Date: 20090326
  Transmission Date: 20091009
  Serious: Yes (Other)
  Sender: FDA-Public Use
  Company Number: US-JNJCH-2009008928

PATIENT
  Sex: Female
  Weight: 57.2 kg

DRUGS (1)
  1. BENADRYL D ALLERGY + SINUS [Suspect]
     Indication: RHINORRHOEA
     Dosage: TEXT:1 TABLET ONCE DAILY
     Route: 048
     Dates: start: 20090212, end: 20090317

REACTIONS (4)
  - ANXIETY [None]
  - HYPERSENSITIVITY [None]
  - PALPITATIONS [None]
  - PERIPHERAL COLDNESS [None]
